FAERS Safety Report 8616212-7 (Version None)
Quarter: 2012Q3

REPORT INFORMATION
  Report Type: 
  Country: None (occurrence: None)
  Receive Date: 20120809
  Receipt Date: 20120730
  Transmission Date: 20120928
  Serious: Yes (Hospitalization)
  Sender: FDA-Public Use
  Company Number: AUR-APL-2012-03398

PATIENT
  Age: 71 Year
  Sex: Male

DRUGS (2)
  1. DONEPEZIL HCL [Suspect]
     Indication: PRODUCT USED FOR UNKNOWN INDICATION
     Dosage: 5MG DAILY
  2. QUETIAPINE FUMARATE [Concomitant]

REACTIONS (5)
  - SPEECH DISORDER [None]
  - EUPHORIC MOOD [None]
  - MANIA [None]
  - PSYCHOMOTOR HYPERACTIVITY [None]
  - SLEEP DISORDER [None]
